FAERS Safety Report 12661579 (Version 8)
Quarter: 2017Q4

REPORT INFORMATION
  Report Type: Spontaneous
  Country: US (occurrence: US)
  Receive Date: 20160817
  Receipt Date: 20171020
  Transmission Date: 20180320
  Serious: No
  Sender: FDA-Public Use
  Company Number: US-PFIZER INC-2016377920

PATIENT
  Age: 67 Year
  Sex: Male
  Weight: 127 kg

DRUGS (15)
  1. NUVIGIL [Concomitant]
     Active Substance: ARMODAFINIL
     Indication: POST HERPETIC NEURALGIA
     Dosage: 150 MG, DAILY
     Dates: start: 20160516
  2. LYRICA [Suspect]
     Active Substance: PREGABALIN
     Indication: INTERVERTEBRAL DISC PROTRUSION
     Dosage: 225 MG, 1-2 X A DAY ON TWICE DAILY
  3. LYRICA [Suspect]
     Active Substance: PREGABALIN
     Indication: POST HERPETIC NEURALGIA
     Dosage: 50 MG, UNK
     Route: 048
  4. HYDROXYZINE HCL [Concomitant]
     Active Substance: HYDROXYZINE HYDROCHLORIDE
     Indication: POST HERPETIC NEURALGIA
     Dosage: 25 MG, EVERY SIX HOURS, AS NEEDED
     Dates: start: 20160516
  5. KLONOPIN [Concomitant]
     Active Substance: CLONAZEPAM
     Indication: POST HERPETIC NEURALGIA
     Dosage: 0.5 MG, 3X/DAY
     Dates: start: 20160516
  6. PAXIL [Concomitant]
     Active Substance: PAROXETINE HYDROCHLORIDE
     Indication: INTERVERTEBRAL DISC DISPLACEMENT
     Dosage: 20 MG, DAILY
     Dates: start: 20160620
  7. LYRICA [Suspect]
     Active Substance: PREGABALIN
     Indication: FIBROMYALGIA
     Dosage: 225 MG, 2X/DAY
     Route: 048
     Dates: start: 2015
  8. LYRICA [Suspect]
     Active Substance: PREGABALIN
     Indication: MYOFASCIAL PAIN SYNDROME
     Dosage: 225 MG, 2X/DAY
     Route: 048
  9. LYRICA [Suspect]
     Active Substance: PREGABALIN
     Indication: INTERVERTEBRAL DISC DISPLACEMENT
     Dosage: 300 MG, 2X/DAY
     Route: 048
  10. DILAUDID [Concomitant]
     Active Substance: HYDROMORPHONE HYDROCHLORIDE
     Indication: INTERVERTEBRAL DISC DISPLACEMENT
     Dosage: 8 MG, (EVERY FOUR HOURS) AS NEEDED
     Dates: start: 20160721
  11. DILAUDID [Concomitant]
     Active Substance: HYDROMORPHONE HYDROCHLORIDE
     Indication: PAIN
  12. LYRICA [Suspect]
     Active Substance: PREGABALIN
     Indication: INTERVERTEBRAL DISC DEGENERATION
     Dosage: 225 MG, 2X/DAY
     Route: 048
     Dates: start: 20160621
  13. BACLOFEN. [Concomitant]
     Active Substance: BACLOFEN
     Indication: INTERVERTEBRAL DISC DEGENERATION
     Dosage: 10 MG, 3X/DAY
     Dates: start: 20160715
  14. AMITIZA [Concomitant]
     Active Substance: LUBIPROSTONE
     Indication: CONSTIPATION
     Dosage: 24 UG, 2X/DAY
     Dates: start: 20160621
  15. LIDODERM [Concomitant]
     Active Substance: LIDOCAINE
     Indication: POST HERPETIC NEURALGIA
     Dosage: 3 DF, DAILY (5%, 3 (THREE) PATCH DAILY, 90 PATCH)
     Dates: start: 20160516

REACTIONS (8)
  - Weight decreased [Unknown]
  - Neuralgia [Unknown]
  - Depression [Not Recovered/Not Resolved]
  - Weight increased [Not Recovered/Not Resolved]
  - Constipation [Not Recovered/Not Resolved]
  - Nerve injury [Unknown]
  - Amnesia [Not Recovered/Not Resolved]
  - Drug effect incomplete [Recovering/Resolving]
